FAERS Safety Report 6110696-4 (Version None)
Quarter: 2009Q1

REPORT INFORMATION
  Report Type: 
  Country: None (occurrence: None)
  Receive Date: 20090309
  Receipt Date: 20090225
  Transmission Date: 20090719
  Serious: Yes (Other)
  Sender: FDA-Public Use
  Company Number: 2009AP000681

PATIENT
  Age: 52 Year
  Sex: Male

DRUGS (2)
  1. TRAZODONE HCL [Suspect]
     Dosage: 50 MG; QD; PO
     Route: 048
     Dates: start: 20021209, end: 20021211
  2. SERTRALINE HYDROCHLORIDE TABLETS (50 MG) [Suspect]
     Dosage: 50 MG; QD; PO
     Route: 048
     Dates: start: 20040808, end: 20040812

REACTIONS (3)
  - DISORIENTATION [None]
  - FATIGUE [None]
  - VOMITING [None]
